FAERS Safety Report 7260374-3 (Version None)
Quarter: 2011Q1

REPORT INFORMATION
  Report Type: 
  Country: None (occurrence: None)
  Receive Date: 20110130
  Receipt Date: 20101006
  Transmission Date: 20110831
  Serious: No
  Sender: FDA-Public Use
  Company Number: US-ABBOTT-10P-163-0677106-00

PATIENT
  Sex: Male
  Weight: 104.42 kg

DRUGS (4)
  1. FIORINAL W/CODEINE [Concomitant]
     Indication: MIGRAINE
  2. HUMIRA [Suspect]
     Indication: CROHN'S DISEASE
     Dates: start: 20090101
  3. MAXALT [Concomitant]
     Indication: MIGRAINE
  4. ACETAMINOPHEN AND HYDROCODONE BITARTRATE [Concomitant]
     Indication: PAIN

REACTIONS (3)
  - ANAEMIA [None]
  - POLYCYTHAEMIA [None]
  - FATIGUE [None]
